FAERS Safety Report 20827997 (Version 1)
Quarter: 2022Q2

REPORT INFORMATION
  Report Type: Other
  Country: None (occurrence: JP)
  Receive Date: 20220513
  Receipt Date: 20220513
  Transmission Date: 20220721
  Serious: Yes (Other)
  Sender: FDA-Public Use
  Company Number: JP-B.Braun Medical Inc.-2128768

PATIENT
  Age: 37 Year
  Sex: Female

DRUGS (1)
  1. MAGNESIUM SULFATE IN DEXTROSE [Suspect]
     Active Substance: MAGNESIUM SULFATE

REACTIONS (5)
  - Product use in unapproved indication [Unknown]
  - Exposure during pregnancy [Unknown]
  - Hypermagnesaemia [Unknown]
  - Blood albumin decreased [Unknown]
  - Blood phosphorus increased [Unknown]
